FAERS Safety Report 10980980 (Version 2)
Quarter: 2015Q2

REPORT INFORMATION
  Report Type: Spontaneous
  Country: US (occurrence: US)
  Receive Date: 20150402
  Receipt Date: 20150525
  Transmission Date: 20150821
  Serious: No
  Sender: FDA-Public Use
  Company Number: US-JNJFOC-20140800468

PATIENT
  Age: 93 Year
  Sex: Female
  Weight: 56.7 kg

DRUGS (9)
  1. PRESCRIPTION MEDICATION [Concomitant]
     Indication: BLOOD CHOLESTEROL INCREASED
     Route: 065
  2. IMODIUM MULTI-SYMPTOM RELIEF [Suspect]
     Active Substance: DIMETHICONE\LOPERAMIDE HYDROCHLORIDE
     Indication: ANTIDIARRHOEAL SUPPORTIVE CARE
     Dosage: 1 CAPLET ONCE AT BED TIME
     Route: 048
  3. PRESCRIPTION MEDICATION [Concomitant]
     Indication: THYROID DISORDER
     Route: 065
  4. PRESCRIPTION MEDICATION [Concomitant]
     Indication: CARDIAC DISORDER
     Route: 065
  5. PRESCRIPTION MEDICATION [Concomitant]
     Indication: DEPRESSION
     Route: 065
  6. IMODIUM MULTI-SYMPTOM RELIEF [Suspect]
     Active Substance: DIMETHICONE\LOPERAMIDE HYDROCHLORIDE
     Route: 048
  7. PRESCRIPTION MEDICATION [Concomitant]
     Indication: PAIN
     Route: 065
  8. PRESCRIPTION MEDICATION [Concomitant]
     Indication: BLOOD PRESSURE
     Route: 065
  9. PRESCRIPTION MEDICATION [Concomitant]
     Indication: ABDOMINAL DISTENSION
     Route: 065

REACTIONS (3)
  - Incorrect dose administered [Unknown]
  - Product difficult to swallow [Unknown]
  - Product packaging issue [Unknown]
